FAERS Safety Report 18718435 (Version 2)
Quarter: 2021Q1

REPORT INFORMATION
  Report Type: Spontaneous
  Country: US (occurrence: US)
  Receive Date: 20210108
  Receipt Date: 20210112
  Transmission Date: 20210419
  Serious: Yes (Other)
  Sender: FDA-Public Use
  Company Number: US-TEVA-2021-US-1866332

PATIENT
  Age: 16 Year
  Sex: Male

DRUGS (2)
  1. FLUOXETINE [Suspect]
     Active Substance: FLUOXETINE HYDROCHLORIDE
     Indication: ANXIETY
     Dosage: 80 MILLIGRAM DAILY;
     Dates: start: 202012
  2. FLUOXETINE [Suspect]
     Active Substance: FLUOXETINE HYDROCHLORIDE
     Indication: DEPRESSION
     Dosage: 80 MILLIGRAM DAILY; WHITE WITH A GREEN STRIPE
     Dates: start: 2019

REACTIONS (12)
  - Fall [Unknown]
  - Limb injury [Recovered/Resolved]
  - Thinking abnormal [Unknown]
  - Behaviour disorder [Unknown]
  - Drug ineffective [Unknown]
  - Crying [Unknown]
  - Anger [Unknown]
  - Fatigue [Unknown]
  - Intentional self-injury [Recovered/Resolved]
  - Crepitations [Unknown]
  - Malaise [Unknown]
  - Tremor [Unknown]

NARRATIVE: CASE EVENT DATE: 2019
